FAERS Safety Report 5523049-4 (Version None)
Quarter: 2007Q4

REPORT INFORMATION
  Report Type: 
  Country: None (occurrence: None)
  Receive Date: 20071119
  Receipt Date: 20071119
  Transmission Date: 20080405
  Serious: Yes (Hospitalization)
  Sender: FDA-Public Use
  Company Number: None

PATIENT
  Sex: Male
  Weight: 109.1 kg

DRUGS (4)
  1. FLUOROURACIL [Suspect]
     Dosage: 20880 MG
  2. BEVACIZUMAB (RHUMAB VEGF) [Suspect]
     Dosage: 2180 MG
  3. CAMPTOSAR [Suspect]
     Dosage: 1400 MG
  4. LEUCOVORIN CALCIUM [Suspect]
     Dosage: 3760 MG

REACTIONS (2)
  - BLOOD URIC ACID INCREASED [None]
  - DIARRHOEA [None]
